FAERS Safety Report 4501558-4 (Version None)
Quarter: 2004Q4

REPORT INFORMATION
  Report Type: 
  Country: None (occurrence: None)
  Receive Date: 20041115
  Receipt Date: 20041105
  Transmission Date: 20050328
  Serious: Yes (Other)
  Sender: FDA-Public Use
  Company Number: US-MERCK-0411USA01393

PATIENT
  Sex: Male

DRUGS (1)
  1. VIOXX [Suspect]
     Route: 048
     Dates: start: 20000101, end: 20020101

REACTIONS (6)
  - ADVERSE EVENT [None]
  - ANXIETY [None]
  - FEAR [None]
  - HYPERTENSION [None]
  - MYOCARDIAL INFARCTION [None]
  - PALPITATIONS [None]
